FAERS Safety Report 25187092 (Version 1)
Quarter: 2025Q2

REPORT INFORMATION
  Report Type: Spontaneous
  Country: DE (occurrence: DE)
  Receive Date: 20250411
  Receipt Date: 20250411
  Transmission Date: 20250716
  Serious: Yes (Hospitalization, Other)
  Sender: GLAXOSMITHKLINE
  Company Number: None

PATIENT

DRUGS (7)
  1. NUCALA [Suspect]
     Active Substance: MEPOLIZUMAB
     Indication: Asthma
     Dosage: 100 MG, Q4W
     Route: 058
     Dates: start: 20250127, end: 20250227
  2. PREDNISOLONE [Concomitant]
     Active Substance: PREDNISOLONE
     Indication: Seasonal allergy
     Route: 065
  3. PREDNISOLONE [Concomitant]
     Active Substance: PREDNISOLONE
     Indication: Seasonal allergy
  4. EPINEPHRINE [Concomitant]
     Active Substance: EPINEPHRINE
     Indication: Seasonal allergy
     Route: 065
  5. EPINEPHRINE [Concomitant]
     Active Substance: EPINEPHRINE
     Indication: Seasonal allergy
  6. DIMETHINDENE [Concomitant]
     Active Substance: DIMETHINDENE
     Indication: Seasonal allergy
     Route: 065
  7. DIMETHINDENE [Concomitant]
     Active Substance: DIMETHINDENE
     Indication: Seasonal allergy

REACTIONS (3)
  - Anaphylactic reaction [Recovered/Resolved]
  - Peripheral vascular disorder [Recovered/Resolved]
  - Dizziness [Recovered/Resolved]

NARRATIVE: CASE EVENT DATE: 20250301
